FAERS Safety Report 19163150 (Version 2)
Quarter: 2021Q2

REPORT INFORMATION
  Report Type: Report from Study
  Country: US (occurrence: US)
  Receive Date: 20210421
  Receipt Date: 20210511
  Transmission Date: 20210717
  Serious: Yes (Hospitalization)
  Sender: FDA-Public Use
  Company Number: US-AMGEN-USACT2021056508

PATIENT
  Age: 66 Year
  Sex: Male
  Weight: 103.6 kg

DRUGS (4)
  1. LENALIDOMIDE [Suspect]
     Active Substance: LENALIDOMIDE
     Indication: NON-HODGKIN^S LYMPHOMA
     Dosage: 20 MILLIGRAM, QD
     Route: 048
     Dates: start: 20201110
  2. BLINATUMOMAB [Suspect]
     Active Substance: BLINATUMOMAB
     Dosage: 112 MICROGRAM, QD
     Route: 042
  3. BLINATUMOMAB [Suspect]
     Active Substance: BLINATUMOMAB
     Indication: NON-HODGKIN^S LYMPHOMA
     Dosage: 9 MICROGRAM, QD (DAYS 1?7)
     Route: 042
     Dates: start: 20201110
  4. BLINATUMOMAB [Suspect]
     Active Substance: BLINATUMOMAB
     Dosage: 28 MICROGRAM, QD (DAYS 8?14)
     Route: 042

REACTIONS (1)
  - Affect lability [Recovered/Resolved]

NARRATIVE: CASE EVENT DATE: 20201215
